FAERS Safety Report 9515394 (Version 2)
Quarter: 2013Q3

REPORT INFORMATION
  Report Type: Report from Study
  Country: AU (occurrence: AU)
  Receive Date: 20130911
  Receipt Date: 20130913
  Transmission Date: 20140515
  Serious: Yes (Other)
  Sender: FDA-Public Use
  Company Number: PHHY2013AU098163

PATIENT
  Age: 24 Year
  Sex: Male
  Weight: 104 kg

DRUGS (2)
  1. CLOZARIL [Suspect]
     Indication: SCHIZOPHRENIA
     Dosage: 200 MG, AT NIGHT (STARTED 2 WEEKS AGO)
  2. CLOZARIL [Suspect]
     Indication: CATATONIA

REACTIONS (8)
  - Ventricular remodeling [Unknown]
  - Blood urea increased [Unknown]
  - Blood glucose decreased [Recovered/Resolved]
  - Glomerular filtration rate decreased [Unknown]
  - Nasopharyngitis [Unknown]
  - Blood creatine phosphokinase increased [Recovered/Resolved]
  - Myalgia [Unknown]
  - Pyrexia [Unknown]
